FAERS Safety Report 7527464-9 (Version None)
Quarter: 2011Q2

REPORT INFORMATION
  Report Type: 
  Country: None (occurrence: None)
  Receive Date: 20110607
  Receipt Date: 20110526
  Transmission Date: 20111010
  Serious: Yes (Other)
  Sender: FDA-Public Use
  Company Number: US-JNJFOC-2010026317

PATIENT
  Sex: Female
  Weight: 77.11 kg

DRUGS (7)
  1. HYDROXYCHLOROQUINE SULFATE [Concomitant]
  2. OMEPRAZOLE [Concomitant]
  3. ZYRTEC [Suspect]
     Indication: ASTHMA
     Dosage: DAILY DOSE TEXT: ONE PILL A DAY
     Route: 048
  4. MYCOPHENOLATE MEFETIL [Concomitant]
  5. NAPROXEN [Concomitant]
  6. WARFARIN SODIUM [Concomitant]
  7. ZYRTEC [Suspect]
     Indication: HYPERSENSITIVITY
     Dosage: DAILY DOSE TEXT: ONE PILL A DAY
     Route: 048

REACTIONS (3)
  - DERMATITIS ALLERGIC [None]
  - SCAR [None]
  - OFF LABEL USE [None]
